FAERS Safety Report 20685450 (Version 1)
Quarter: 2022Q2

REPORT INFORMATION
  Report Type: Spontaneous
  Country: NL (occurrence: NL)
  Receive Date: 20220407
  Receipt Date: 20220407
  Transmission Date: 20220721
  Serious: Yes (Hospitalization)
  Sender: FDA-Public Use
  Company Number: NL-NOVARTISPH-NVSC2022NL077870

PATIENT
  Age: 77 Year
  Sex: Male

DRUGS (9)
  1. AMOXICILLIN AND CLAVULANATE POTASSIUM [Suspect]
     Active Substance: AMOXICILLIN\CLAVULANATE POTASSIUM
     Indication: Wound infection
     Dosage: 500MG/125 MG
     Route: 048
     Dates: start: 20210901, end: 20210918
  2. COLCHICINE [Concomitant]
     Active Substance: COLCHICINE
     Indication: Gout
     Dosage: 1.5 MG
     Route: 048
  3. ACENOCOUMAROL [Concomitant]
     Active Substance: ACENOCOUMAROL
     Indication: Atrial flutter
     Dosage: 1 MG,AS NEEDED
     Route: 048
  4. BUMETANIDE [Concomitant]
     Active Substance: BUMETANIDE
     Indication: Cardiac failure
     Dosage: 10 MG, QD (5 MG, BID)
     Route: 048
  5. HYDROCHLOROTHIAZIDE [Concomitant]
     Active Substance: HYDROCHLOROTHIAZIDE
     Indication: Oedema
     Dosage: 12.5 MG
     Route: 048
  6. ALLOPURINOL [Concomitant]
     Active Substance: ALLOPURINOL
     Indication: Gout
     Dosage: 400 MG, QD (200 MG, BID)
     Route: 048
  7. SLOW K [Concomitant]
     Active Substance: POTASSIUM CHLORIDE
     Indication: Metabolic disorder prophylaxis
     Dosage: 1800 MG, QD (600 MG, TID)
     Route: 048
  8. EPLERENONE [Concomitant]
     Active Substance: EPLERENONE
     Indication: Cardiac failure
     Dosage: 50 MG, QD
     Route: 048
  9. PREDNISONE [Concomitant]
     Active Substance: PREDNISONE
     Indication: Polyneuropathy
     Dosage: 10 MG, QD
     Route: 048

REACTIONS (2)
  - Abdominal pain [Recovered/Resolved]
  - Diarrhoea [Recovered/Resolved]

NARRATIVE: CASE EVENT DATE: 20210903
